FAERS Safety Report 14078086 (Version 1)
Quarter: 2017Q4

REPORT INFORMATION
  Report Type: Spontaneous
  Country: US (occurrence: None)
  Receive Date: 20171011
  Receipt Date: 20171011
  Transmission Date: 20180321
  Serious: Yes (Hospitalization)
  Sender: FDA-Public Use
  Company Number: None

PATIENT
  Age: 50 Year
  Sex: Female

DRUGS (15)
  1. LACTULOSE. [Concomitant]
     Active Substance: LACTULOSE
  2. FLUOXETINE [Concomitant]
     Active Substance: FLUOXETINE HYDROCHLORIDE
  3. KCL [Concomitant]
     Active Substance: POTASSIUM CHLORIDE
  4. TRAMADOL. [Concomitant]
     Active Substance: TRAMADOL
  5. SILDENAFIL. [Concomitant]
     Active Substance: SILDENAFIL
  6. TRACLEER [Suspect]
     Active Substance: BOSENTAN
     Indication: HEART DISEASE CONGENITAL
     Route: 048
     Dates: start: 201412
  7. FUROSEMIDE. [Concomitant]
     Active Substance: FUROSEMIDE
  8. TRACLEER [Suspect]
     Active Substance: BOSENTAN
     Indication: CONNECTIVE TISSUE DISORDER
     Route: 048
     Dates: start: 201412
  9. TRACLEER [Suspect]
     Active Substance: BOSENTAN
     Indication: PULMONARY ARTERIAL HYPERTENSION
     Route: 048
     Dates: start: 201412
  10. GABAPENTIN. [Concomitant]
     Active Substance: GABAPENTIN
  11. PROCHLOPERAZINE [Concomitant]
  12. EPROSTENOL [Concomitant]
  13. LORAZEPAM. [Concomitant]
     Active Substance: LORAZEPAM
  14. TIZANIDINE. [Concomitant]
     Active Substance: TIZANIDINE
  15. ONDANSETRON [Concomitant]
     Active Substance: ONDANSETRON

REACTIONS (6)
  - Nausea [None]
  - Vomiting [None]
  - Clostridium test positive [None]
  - Diarrhoea [None]
  - Malaise [None]
  - Abdominal pain [None]

NARRATIVE: CASE EVENT DATE: 20170920
